FAERS Safety Report 10077462 (Version 1)
Quarter: 2014Q2

REPORT INFORMATION
  Report Type: Spontaneous
  Country: US (occurrence: US)
  Receive Date: 20140414
  Receipt Date: 20140414
  Transmission Date: 20141212
  Serious: No
  Sender: FDA-Public Use
  Company Number: US-BANPHARM-20131561

PATIENT
  Age: 66 Year
  Sex: Female
  Weight: 73.48 kg

DRUGS (7)
  1. ALEVE LIQUID GELS 220 MG [Suspect]
     Indication: BACK PAIN
     Dosage: 2 DF, BID,
     Route: 048
     Dates: start: 20130724, end: 20130724
  2. MELOXICAM [Concomitant]
  3. MORPHINE [Concomitant]
  4. GENERIC CALCIUM SUPPLEMENT [Concomitant]
     Dosage: 1200 MG,
  5. POTASSIUM [Concomitant]
  6. AMITRIPTYLINE [Concomitant]
  7. VITAMIN D 800 IU [Concomitant]

REACTIONS (2)
  - Poor quality sleep [Recovered/Resolved]
  - Incorrect dose administered [Unknown]
